FAERS Safety Report 8399817-0 (Version None)
Quarter: 2012Q2

REPORT INFORMATION
  Report Type: 
  Country: None (occurrence: None)
  Receive Date: 20120531
  Receipt Date: 20120518
  Transmission Date: 20120825
  Serious: Yes (Hospitalization)
  Sender: FDA-Public Use
  Company Number: GB-MYLANLABS-2012S1009524

PATIENT
  Age: 75 Year
  Sex: Male
  Weight: 70 kg

DRUGS (4)
  1. ALLOPURINOL [Concomitant]
     Indication: GOUT
     Route: 048
  2. AMIODARONE HCL [Concomitant]
     Indication: VENTRICULAR ARRHYTHMIA
     Route: 048
  3. BUMETANIDE [Concomitant]
     Indication: PRODUCT USED FOR UNKNOWN INDICATION
  4. BISOPROLOL FUMARATE [Suspect]
     Indication: PRODUCT USED FOR UNKNOWN INDICATION
     Route: 048
     Dates: start: 20120229

REACTIONS (6)
  - LETHARGY [None]
  - MALAISE [None]
  - BRADYCARDIA [None]
  - DIARRHOEA [None]
  - WRONG DRUG ADMINISTERED [None]
  - DYSPNOEA [None]
